FAERS Safety Report 14901576 (Version 1)
Quarter: 2018Q2

REPORT INFORMATION
  Report Type: Spontaneous
  Country: US (occurrence: US)
  Receive Date: 20180429
  Receipt Date: 20180429
  Transmission Date: 20180711
  Serious: No
  Sender: FDA-Public Use
  Company Number: None

PATIENT
  Age: 56 Year
  Sex: Female

DRUGS (1)
  1. GENOTROPIN [Suspect]
     Active Substance: SOMATROPIN
     Indication: HYPOPITUITARISM
     Route: 058
     Dates: start: 20171208

REACTIONS (4)
  - Inability to afford medication [None]
  - Dyspepsia [None]
  - Diabetic ulcer [None]
  - Drug dose omission [None]

NARRATIVE: CASE EVENT DATE: 20180314
